FAERS Safety Report 5799596-7 (Version None)
Quarter: 2008Q3

REPORT INFORMATION
  Report Type: 
  Country: None (occurrence: None)
  Receive Date: 20080703
  Receipt Date: 20080620
  Transmission Date: 20090109
  Serious: Yes (Other)
  Sender: FDA-Public Use
  Company Number: PHHY2008JP10604

PATIENT

DRUGS (3)
  1. CYCLOSPORINE [Suspect]
     Indication: NEPHROTIC SYNDROME
     Dosage: UNK
  2. PREDNISOLONE [Concomitant]
     Indication: NEPHROTIC SYNDROME
  3. METHYLPREDNISOLONE [Concomitant]
     Indication: NEPHROTIC SYNDROME
     Dosage: UNK

REACTIONS (7)
  - ALTERED STATE OF CONSCIOUSNESS [None]
  - CEREBROVASCULAR SPASM [None]
  - CONVULSION [None]
  - EYE MOVEMENT DISORDER [None]
  - NUCLEAR MAGNETIC RESONANCE IMAGING ABNORMAL [None]
  - REVERSIBLE POSTERIOR LEUKOENCEPHALOPATHY SYNDROME [None]
  - TRANSIENT ISCHAEMIC ATTACK [None]
